FAERS Safety Report 15017396 (Version 1)
Quarter: 2018Q2

REPORT INFORMATION
  Report Type: Spontaneous
  Country: US (occurrence: US)
  Receive Date: 20180523
  Receipt Date: 20180523
  Transmission Date: 20180711
  Serious: Yes (Other)
  Sender: FDA-Public Use
  Company Number: None

PATIENT
  Age: 54 Year
  Sex: Female
  Weight: 51.26 kg

DRUGS (9)
  1. FISH OIL [Concomitant]
     Active Substance: FISH OIL
  2. VITAMIN D [Concomitant]
     Active Substance: CHOLECALCIFEROL
  3. ATIVAN [Concomitant]
     Active Substance: LORAZEPAM
  4. LOREZAPAM [Concomitant]
  5. NUCALA [Suspect]
     Active Substance: MEPOLIZUMAB
     Indication: MULTIPLE ALLERGIES
     Dates: start: 20171108, end: 20180525
  6. SINGULAIR [Concomitant]
     Active Substance: MONTELUKAST SODIUM
  7. PROBIOTIC [Concomitant]
     Active Substance: PROBIOTICS NOS
  8. NUCALA [Suspect]
     Active Substance: MEPOLIZUMAB
     Indication: CHRONIC SINUSITIS
     Dates: start: 20171108, end: 20180525
  9. ALBUTEROL HFA INHALER [Concomitant]

REACTIONS (6)
  - Food craving [None]
  - Abdominal distension [None]
  - Peripheral swelling [None]
  - Haemoptysis [None]
  - Epistaxis [None]
  - Weight abnormal [None]

NARRATIVE: CASE EVENT DATE: 201802
